FAERS Safety Report 8007127-6 (Version None)
Quarter: 2011Q4

REPORT INFORMATION
  Report Type: 
  Country: None (occurrence: None)
  Receive Date: 20111227
  Receipt Date: 20111219
  Transmission Date: 20120403
  Serious: Yes (Hospitalization)
  Sender: FDA-Public Use
  Company Number: AU-JNJFOC-20111202111

PATIENT
  Sex: Male
  Weight: 68.2 kg

DRUGS (2)
  1. INVEGA SUSTENNA [Suspect]
     Indication: SCHIZOPHRENIA
     Route: 030
     Dates: start: 20110325
  2. INVEGA SUSTENNA [Suspect]
     Route: 030
     Dates: start: 20111128

REACTIONS (1)
  - EMOTIONAL DISORDER [None]
